FAERS Safety Report 8378376-2 (Version None)
Quarter: 2012Q2

REPORT INFORMATION
  Report Type: 
  Country: None (occurrence: None)
  Receive Date: 20120522
  Receipt Date: 20120507
  Transmission Date: 20120825
  Serious: Yes (Hospitalization, Other)
  Sender: FDA-Public Use
  Company Number: ES-JNJFOC-20100405601

PATIENT
  Sex: Female
  Weight: 48.8 kg

DRUGS (10)
  1. REMICADE [Suspect]
     Route: 042
     Dates: start: 20100324
  2. REMICADE [Suspect]
     Route: 042
     Dates: start: 20100421
  3. REMICADE [Suspect]
     Route: 042
     Dates: start: 20100519
  4. REMICADE [Suspect]
     Route: 042
     Dates: start: 20100719
  5. REMICADE [Suspect]
     Route: 042
     Dates: start: 20101018
  6. REMICADE [Suspect]
     Indication: CROHN'S DISEASE
     Route: 042
     Dates: start: 20100613
  7. REMICADE [Suspect]
     Route: 042
     Dates: start: 20100126
  8. REMICADE [Suspect]
     Route: 042
     Dates: start: 20100224
  9. REMICADE [Suspect]
     Route: 042
     Dates: start: 20100813
  10. REMICADE [Suspect]
     Route: 042
     Dates: start: 20100920

REACTIONS (2)
  - FOETAL MALPOSITION [None]
  - MATERNAL EXPOSURE DURING PREGNANCY [None]
